FAERS Safety Report 5170594-X (Version None)
Quarter: 2006Q4

REPORT INFORMATION
  Report Type: 
  Country: None (occurrence: None)
  Receive Date: 20061205
  Receipt Date: 20061121
  Transmission Date: 20070319
  Serious: Yes (Hospitalization)
  Sender: FDA-Public Use
  Company Number: A040669

PATIENT
  Age: 33 Year
  Sex: Female

DRUGS (7)
  1. HYDROXYZINE [Suspect]
     Indication: ANXIETY
     Dosage: 125 MG, ORAL
     Route: 048
  2. CLOMIPRAMINE HCL [Suspect]
     Indication: ANXIETY
     Dosage: 75 MG (DAILY), ORAL
     Route: 048
  3. OXAZEPAM [Suspect]
     Indication: ANXIETY
     Dosage: 10 MG (PRN), ORAL
     Route: 048
  4. CORTICOSTEROIDS (CORTICOSTEROIDS) [Concomitant]
  5. SPASFON (PHLOROGLUCINOL, TRIMETHYLPHLOROGLUCINOL) [Concomitant]
  6. AMOXICILLIN TRIHYDRATE [Concomitant]
  7. NICARDIPINE HYDROCHLORIDE [Concomitant]

REACTIONS (9)
  - AMNIORRHOEA [None]
  - CERVICAL INCOMPETENCE [None]
  - DRUG EXPOSURE DURING PREGNANCY [None]
  - EXTRAPYRAMIDAL DISORDER [None]
  - METRORRHAGIA [None]
  - PREMATURE BABY [None]
  - RUBELLA ANTIBODY POSITIVE [None]
  - TOXOPLASMA SEROLOGY POSITIVE [None]
  - UTERINE CONTRACTIONS ABNORMAL [None]
